FAERS Safety Report 15619594 (Version 2)
Quarter: 2018Q4

REPORT INFORMATION
  Report Type: Spontaneous
  Country: US (occurrence: US)
  Receive Date: 20181115
  Receipt Date: 20181115
  Transmission Date: 20190205
  Serious: Yes (Other)
  Sender: FDA-Public Use
  Company Number: US-JNJFOC-20181106584

PATIENT
  Age: 79 Year
  Sex: Male

DRUGS (2)
  1. TYLENOL EXTRA STRENGTH [Suspect]
     Active Substance: ACETAMINOPHEN
     Indication: ARTHRALGIA
     Dosage: 1 IN THE MORNING 1 AT NIGHT. 2X PER DAY
     Route: 048
     Dates: start: 201809
  2. TYLENOL EXTRA STRENGTH [Suspect]
     Active Substance: ACETAMINOPHEN
     Indication: BACK PAIN
     Dosage: 1 IN THE MORNING 1 AT NIGHT. 2X PER DAY
     Route: 048
     Dates: start: 201809

REACTIONS (3)
  - Incorrect dose administered [Unknown]
  - Dyschezia [Not Recovered/Not Resolved]
  - Haematochezia [Not Recovered/Not Resolved]

NARRATIVE: CASE EVENT DATE: 201809
